FAERS Safety Report 10717432 (Version 1)
Quarter: 2015Q1

REPORT INFORMATION
  Report Type: Spontaneous
  Country: ES (occurrence: ES)
  Receive Date: 20150116
  Receipt Date: 20150116
  Transmission Date: 20150721
  Serious: Yes (Other)
  Sender: FDA-Public Use
  Company Number: ES-PFIZER INC-2015018634

PATIENT
  Age: 34 Year
  Sex: Female

DRUGS (1)
  1. LOETTE [Suspect]
     Active Substance: ETHINYL ESTRADIOL\LEVONORGESTREL
     Indication: CONTRACEPTION
     Dosage: UNK
     Route: 048
     Dates: start: 20131010, end: 20141019

REACTIONS (3)
  - Drug ineffective [Recovered/Resolved]
  - Unintended pregnancy [Recovered/Resolved]
  - Abortion [Recovered/Resolved with Sequelae]

NARRATIVE: CASE EVENT DATE: 2014
